FAERS Safety Report 10833449 (Version 2)
Quarter: 2015Q1

REPORT INFORMATION
  Report Type: Spontaneous
  Country: US (occurrence: US)
  Receive Date: 20150219
  Receipt Date: 20150220
  Transmission Date: 20150721
  Serious: Yes (Hospitalization, Other)
  Sender: FDA-Public Use
  Company Number: US-MALLINCKRODT-T201501058

PATIENT
  Age: 36 Year
  Sex: Male

DRUGS (13)
  1. FENTANYL. [Suspect]
     Active Substance: FENTANYL
     Indication: ANALGESIC THERAPY
     Dosage: UP TO 200 MCG/HOUR
     Route: 042
  2. CEFEPIME [Concomitant]
     Active Substance: CEFEPIME\CEFEPIME HYDROCHLORIDE
     Dosage: 2 G EVERY 12 HOURS
  3. ATOMOXETINE [Concomitant]
     Active Substance: ATOMOXETINE
     Dosage: 80 MG/DAY
  4. FENTANYL. [Suspect]
     Active Substance: FENTANYL
     Dosage: 150 MCG EVERY 2 HRS, PRN
     Route: 042
  5. LORAZEPAM. [Concomitant]
     Active Substance: LORAZEPAM
     Indication: PAIN
     Dosage: 10 MG EVERY 4 HOURS
  6. CLONAZEPAM. [Concomitant]
     Active Substance: CLONAZEPAM
     Dosage: 1 MG, 3 TIMES/DAY
  7. METHADOSE [Suspect]
     Active Substance: METHADONE HYDROCHLORIDE
     Indication: ANALGESIC THERAPY
     Dosage: 30 MG EVERY 6 HOURS
     Route: 065
  8. VANCOMYCIN [Concomitant]
     Active Substance: VANCOMYCIN
     Dosage: GOAL TROUGH OF 15-20 MCG/ML
  9. DIAZEPAM. [Concomitant]
     Active Substance: DIAZEPAM
     Dosage: 60 MG EVERY 12 HOURS
  10. OXYCODONE [Concomitant]
     Active Substance: OXYCODONE
     Dosage: 20 MG EVERY 4 HOURS , PRN
  11. LORAZEPAM. [Concomitant]
     Active Substance: LORAZEPAM
     Indication: SEDATION
     Dosage: 6 MG EVERY 4 HOURS
     Route: 042
  12. LORAZEPAM. [Concomitant]
     Active Substance: LORAZEPAM
     Dosage: 6 MG EVERY 2 HOURS, PRN
     Route: 042
  13. VORICONAZOLE. [Concomitant]
     Active Substance: VORICONAZOLE
     Dosage: 200 MG EVERY 12 HOURS

REACTIONS (1)
  - Serotonin syndrome [Recovered/Resolved]
